FAERS Safety Report 24757705 (Version 1)
Quarter: 2024Q4

REPORT INFORMATION
  Report Type: Spontaneous
  Country: US (occurrence: US)
  Receive Date: 20241220
  Receipt Date: 20241220
  Transmission Date: 20250115
  Serious: No
  Sender: UCB
  Company Number: US-UCBSA-2024045636

PATIENT
  Age: 25 Year
  Sex: Female
  Weight: 77.098 kg

DRUGS (3)
  1. BIMZELX [Suspect]
     Active Substance: BIMEKIZUMAB-BKZX
     Indication: Psoriasis
     Dosage: 320 MILLIGRAM, EV 8 WEEKS
     Route: 058
     Dates: start: 20240404
  2. BIMZELX [Suspect]
     Active Substance: BIMEKIZUMAB-BKZX
     Indication: Hyperhidrosis
  3. BIMZELX [Suspect]
     Active Substance: BIMEKIZUMAB-BKZX
     Indication: Off label use

REACTIONS (2)
  - Drug intolerance [Unknown]
  - Off label use [Unknown]

NARRATIVE: CASE EVENT DATE: 20240903
